FAERS Safety Report 6738370-1 (Version None)
Quarter: 2010Q2

REPORT INFORMATION
  Report Type: 
  Country: None (occurrence: None)
  Receive Date: 20100520
  Receipt Date: 20100506
  Transmission Date: 20101027
  Serious: Yes (Life-Threatening, Hospitalization)
  Sender: FDA-Public Use
  Company Number: 2010AP000937

PATIENT
  Age: 18 Year
  Sex: Male

DRUGS (9)
  1. CLARITHROMYCIN [Suspect]
     Dosage: 500 MG;BID
     Dates: start: 20100408
  2. CEFUROXIME [Suspect]
     Indication: CHOLECYSTITIS
     Dosage: 1.5 GML IV;TID
     Route: 042
     Dates: start: 20100406, end: 20100406
  3. ENOXAPARIN SODIUM [Concomitant]
  4. CODEINE SULFATE [Concomitant]
  5. CYCLIZINE [Concomitant]
  6. FOLIC ACID [Concomitant]
  7. METRONIDAZOLE [Concomitant]
  8. PARACETAMOL [Concomitant]
  9. PHENOXYMETHLPENICILLIN [Concomitant]

REACTIONS (7)
  - BLISTER [None]
  - CANDIDIASIS [None]
  - LIP SWELLING [None]
  - MOUTH ULCERATION [None]
  - OROPHARYNGEAL PAIN [None]
  - STEVENS-JOHNSON SYNDROME [None]
  - TONGUE DISCOLOURATION [None]
